FAERS Safety Report 4344808-X (Version None)
Quarter: 2004Q2

REPORT INFORMATION
  Report Type: 
  Country: None (occurrence: None)
  Receive Date: 20040420
  Receipt Date: 20040408
  Transmission Date: 20050107
  Serious: Yes (Hospitalization)
  Sender: FDA-Public Use
  Company Number: US-JNJFOC-20040401721

PATIENT
  Age: 69 Year
  Sex: Female
  Weight: 90.7194 kg

DRUGS (12)
  1. INFLIXIMAB (INFLIXIMAB, RECOMBINANT) LYOPHILIZED POWDER [Suspect]
     Indication: RHEUMATOID ARTHRITIS
     Dosage: INTRAVENOUS
     Route: 042
     Dates: start: 20011128, end: 20020601
  2. SYNTHROID [Concomitant]
  3. NEXIUM [Concomitant]
  4. ZOLOFT [Concomitant]
  5. ACEON [Concomitant]
  6. CELEBREX [Concomitant]
  7. ASPIRING (ACETYLSALICYLIC ACID) [Concomitant]
  8. MULTIVITAMIN (MULTIVITAMINS) [Concomitant]
  9. IBUPROFEN [Concomitant]
  10. ZOLOFT [Concomitant]
  11. SINEMET (SINEMET) TABLETS [Concomitant]
  12. ALBUTEROL (SALBUTAMOL) INHALATION [Concomitant]

REACTIONS (2)
  - NERVOUS SYSTEM DISORDER [None]
  - VERTIGO [None]
